FAERS Safety Report 7821712-3 (Version None)
Quarter: 2011Q4

REPORT INFORMATION
  Report Type: 
  Country: None (occurrence: None)
  Receive Date: 20111018
  Receipt Date: 20110531
  Transmission Date: 20120403
  Serious: No
  Sender: FDA-Public Use
  Company Number: US-ASTRAZENECA-2011SE33530

PATIENT
  Age: 53 Year
  Sex: Male

DRUGS (3)
  1. COMBIVENT [Concomitant]
  2. SYMBICORT [Suspect]
     Indication: CHRONIC OBSTRUCTIVE PULMONARY DISEASE
     Dosage: DOSE FREQUENCY-TWO TIMES A DAY, TOTAL DAILY DOSE-160
     Route: 055
     Dates: start: 20100901
  3. SPIRIVA [Concomitant]

REACTIONS (2)
  - OXYGEN CONSUMPTION INCREASED [None]
  - BREAST LUMP REMOVAL [None]
